FAERS Safety Report 24561632 (Version 3)
Quarter: 2025Q1

REPORT INFORMATION
  Report Type: Report from Study
  Country: CA (occurrence: CA)
  Receive Date: 20241029
  Receipt Date: 20250123
  Transmission Date: 20250409
  Serious: Yes (Death, Hospitalization)
  Sender: TAIHO ONCOLOGY INC
  Company Number: CA-TAIHO-2024_023379

PATIENT
  Age: 74 Year
  Sex: Male

DRUGS (1)
  1. INQOVI [Suspect]
     Active Substance: CEDAZURIDINE\DECITABINE
     Indication: Myelodysplastic syndrome
     Dosage: 1 DF (35 MG DECITABINE AND 100 MG CEDAZURIDINE), QD ON DAYS 1 TO 5 OF EVERY 28 DAYS?DAILY DOSE: 1 DO
     Route: 048
     Dates: start: 20240819

REACTIONS (5)
  - Death [Fatal]
  - COVID-19 [Unknown]
  - Herpes zoster [Unknown]
  - Pneumonia [Unknown]
  - Abdominal discomfort [Recovered/Resolved]

NARRATIVE: CASE EVENT DATE: 20240819
